FAERS Safety Report 23538170 (Version 1)
Quarter: 2024Q1

REPORT INFORMATION
  Report Type: Spontaneous
  Country: GB (occurrence: GB)
  Receive Date: 20240219
  Receipt Date: 20240219
  Transmission Date: 20240409
  Serious: Yes (Hospitalization, Other)
  Sender: FDA-Public Use
  Company Number: None

PATIENT
  Age: 88 Year
  Sex: Female

DRUGS (13)
  1. FUROSEMIDE [Suspect]
     Active Substance: FUROSEMIDE
     Indication: Product used for unknown indication
     Dates: start: 20230822
  2. CANDESARTAN [Suspect]
     Active Substance: CANDESARTAN
     Indication: Product used for unknown indication
  3. ADIZEM [Concomitant]
     Active Substance: DILTIAZEM HYDROCHLORIDE
  4. LEVEMIR [Concomitant]
     Active Substance: INSULIN DETEMIR
     Dosage: MORNING, 100 UNITS/ML SOLUTION FOR INJECTION 3 ML PRE-FILLED PENS
  5. ATORVASTATIN [Concomitant]
     Active Substance: ATORVASTATIN
     Dosage: AT NIGHT
  6. ESTRIOL [Concomitant]
     Active Substance: ESTRIOL
     Dosage: APPLY MDU
     Route: 061
  7. OMEPRAZOLE [Concomitant]
     Active Substance: OMEPRAZOLE
  8. METFORMIN [Concomitant]
     Active Substance: METFORMIN HYDROCHLORIDE
  9. ACETAMINOPHEN [Concomitant]
     Active Substance: ACETAMINOPHEN
     Dosage: 1-2 BD PRN
  10. FEXOFENADINE [Concomitant]
     Active Substance: FEXOFENADINE HYDROCHLORIDE
  11. DILTIAZEM [Concomitant]
     Active Substance: DILTIAZEM
  12. FERROUS FUMARATE [Concomitant]
     Active Substance: FERROUS FUMARATE
  13. CANDESARTAN [Suspect]
     Active Substance: CANDESARTAN
     Indication: Product used for unknown indication

REACTIONS (1)
  - Acute kidney injury [Recovered/Resolved]
